FAERS Safety Report 11176287 (Version 1)
Quarter: 2015Q2

REPORT INFORMATION
  Report Type: Report from Study
  Country: US (occurrence: US)
  Receive Date: 20150609
  Receipt Date: 20150609
  Transmission Date: 20150821
  Serious: No
  Sender: FDA-Public Use
  Company Number: US-AMGEN-USASL2015053928

PATIENT
  Age: 74 Year
  Sex: Female

DRUGS (1)
  1. ENBREL [Suspect]
     Active Substance: ETANERCEPT
     Indication: PSORIASIS
     Dosage: 50 MG, QWK
     Route: 065
     Dates: start: 20141210

REACTIONS (3)
  - Injection site haemorrhage [Recovered/Resolved]
  - Rash macular [Not Recovered/Not Resolved]
  - Skin plaque [Recovering/Resolving]

NARRATIVE: CASE EVENT DATE: 2015
